FAERS Safety Report 8804539 (Version 2)
Quarter: 2015Q3

REPORT INFORMATION
  Report Type: Report from Study
  Country: US (occurrence: US)
  Receive Date: 20120924
  Receipt Date: 20150731
  Transmission Date: 20151125
  Serious: Yes (Death)
  Sender: FDA-Public Use
  Company Number: US-ROCHE-1101880

PATIENT
  Sex: Male

DRUGS (13)
  1. MEDROL [Concomitant]
     Active Substance: METHYLPREDNISOLONE
  2. ZOFRAN [Concomitant]
     Active Substance: ONDANSETRON HYDROCHLORIDE
     Route: 042
  3. VISTARIL [Concomitant]
     Active Substance: HYDROXYZINE PAMOATE
     Route: 065
  4. LEXAPRO [Concomitant]
     Active Substance: ESCITALOPRAM OXALATE
     Route: 065
  5. ZESTRIL [Concomitant]
     Active Substance: LISINOPRIL
  6. KEFLEX [Concomitant]
     Active Substance: CEPHALEXIN
     Route: 065
  7. AVASTIN [Suspect]
     Active Substance: BEVACIZUMAB
     Indication: RENAL CANCER
     Route: 042
     Dates: start: 200510
  8. ZYRTEC [Concomitant]
     Active Substance: CETIRIZINE HYDROCHLORIDE
     Route: 065
  9. COMPAZINE [Concomitant]
     Active Substance: PROCHLORPERAZINE MALEATE
  10. COLCHICINE. [Concomitant]
     Active Substance: COLCHICINE
  11. SORAFENIB [Concomitant]
     Active Substance: SORAFENIB
  12. OXYCODONE [Concomitant]
     Active Substance: OXYCODONE
     Route: 065
  13. AVASTIN [Suspect]
     Active Substance: BEVACIZUMAB
     Indication: MALIGNANT URINARY TRACT NEOPLASM
     Route: 042

REACTIONS (13)
  - Depression [Unknown]
  - Haemorrhoids [Recovered/Resolved]
  - Fatigue [Unknown]
  - Tenderness [Unknown]
  - Proteinuria [Unknown]
  - Rectal fissure [Recovered/Resolved]
  - Rectal haemorrhage [Unknown]
  - Peripheral swelling [Unknown]
  - Hypertension [Unknown]
  - Death [Fatal]
  - Arthralgia [Recovered/Resolved]
  - Headache [Unknown]
  - Off label use [Unknown]
